FAERS Safety Report 8901415 (Version 1)
Quarter: 2012Q4

REPORT INFORMATION
  Report Type: Report from Study
  Country: CA (occurrence: CA)
  Receive Date: 20121109
  Receipt Date: 20121109
  Transmission Date: 20130627
  Serious: Yes (Other)
  Sender: FDA-Public Use
  Company Number: CA-JNJFOC-20121017589

PATIENT
  Sex: Male
  Weight: 84 kg

DRUGS (6)
  1. REMICADE [Suspect]
     Indication: CROHN^S DISEASE
     Route: 042
     Dates: start: 200805, end: 201201
  2. METHOTREXATE [Concomitant]
     Route: 048
  3. LIPITOR [Concomitant]
     Route: 048
  4. NOVOTRIAMZIDE [Concomitant]
     Route: 048
  5. FLOMAX [Concomitant]
     Route: 048
  6. FOLIC ACID [Concomitant]
     Route: 048

REACTIONS (1)
  - Oesophageal carcinoma [Unknown]
